FAERS Safety Report 22235686 (Version 1)
Quarter: 2023Q2

REPORT INFORMATION
  Report Type: Spontaneous
  Country: BR (occurrence: BR)
  Receive Date: 20230420
  Receipt Date: 20230420
  Transmission Date: 20230721
  Serious: Yes (Other)
  Sender: FDA-Public Use
  Company Number: BR-BAYER-2022A125027

PATIENT
  Age: 26 Year
  Sex: Female
  Weight: 70 kg

DRUGS (2)
  1. MIRENA [Suspect]
     Active Substance: LEVONORGESTREL
     Indication: Endometriosis
     Dosage: 20?G/DAY
     Route: 015
     Dates: start: 20220221, end: 20220926
  2. MIRENA [Suspect]
     Active Substance: LEVONORGESTREL
     Indication: Polycystic ovaries

REACTIONS (7)
  - Pregnancy with contraceptive device [Recovered/Resolved]
  - Foetal growth restriction [None]
  - Foetal heart rate abnormal [None]
  - Drug ineffective [None]
  - Off label use of device [None]
  - Device use issue [None]
  - Device expulsion [Recovered/Resolved]

NARRATIVE: CASE EVENT DATE: 20220221
